FAERS Safety Report 4302481-0 (Version None)
Quarter: 2004Q1

REPORT INFORMATION
  Report Type: 
  Country: None (occurrence: None)
  Receive Date: 20040218
  Receipt Date: 20030714
  Transmission Date: 20041129
  Serious: Yes (Other)
  Sender: FDA-Public Use
  Company Number: PHEH2003US05931

PATIENT
  Age: 45 Year
  Sex: Female

DRUGS (2)
  1. DIOVAN [Suspect]
     Dosage: ORAL
     Route: 048
     Dates: start: 20030101
  2. DIGOXIN [Concomitant]

REACTIONS (2)
  - ACCIDENTAL EXPOSURE [None]
  - ANGIONEUROTIC OEDEMA [None]
